FAERS Safety Report 22322961 (Version 1)
Quarter: 2023Q2

REPORT INFORMATION
  Report Type: Spontaneous
  Country: US (occurrence: US)
  Receive Date: 20230516
  Receipt Date: 20230516
  Transmission Date: 20230721
  Serious: No
  Sender: FDA-Public Use
  Company Number: AXS2022-238

PATIENT
  Sex: Female

DRUGS (3)
  1. SUNOSI [Suspect]
     Active Substance: SOLRIAMFETOL
     Indication: Hypersomnia
     Dosage: UNK
     Route: 048
  2. SUNOSI [Suspect]
     Active Substance: SOLRIAMFETOL
     Route: 048
  3. HYDROXYZINE [Concomitant]
     Active Substance: HYDROXYZINE HYDROCHLORIDE
     Indication: Panic attack
     Dosage: 10 MG

REACTIONS (2)
  - Adverse drug reaction [Unknown]
  - Off label use [Unknown]
